FAERS Safety Report 18098683 (Version 1)
Quarter: 2020Q3

REPORT INFORMATION
  Report Type: Spontaneous
  Country: US (occurrence: US)
  Receive Date: 20200731
  Receipt Date: 20200731
  Transmission Date: 20201103
  Serious: No
  Sender: FDA-Public Use
  Company Number: US-JNJFOC-20200731751

PATIENT
  Sex: Male
  Weight: 117.13 kg

DRUGS (2)
  1. SPRAVATO [Suspect]
     Active Substance: ESKETAMINE
     Indication: PRODUCT USED FOR UNKNOWN INDICATION
     Route: 065
     Dates: start: 20200601
  2. SPRAVATO [Suspect]
     Active Substance: ESKETAMINE
     Route: 065
     Dates: start: 20200709

REACTIONS (2)
  - Off label use [Unknown]
  - Product use issue [Unknown]
